FAERS Safety Report 24742518 (Version 1)
Quarter: 2024Q4

REPORT INFORMATION
  Report Type: Report from Study
  Country: BR (occurrence: BR)
  Receive Date: 20241217
  Receipt Date: 20241217
  Transmission Date: 20250114
  Serious: Yes (Other)
  Sender: UCB
  Company Number: BR-UCBSA-2024054920

PATIENT
  Sex: Female
  Weight: 63 kg

DRUGS (2)
  1. CERTOLIZUMAB PEGOL [Suspect]
     Active Substance: CERTOLIZUMAB PEGOL
     Indication: Rheumatoid arthritis
     Dosage: TWO SYRINGES, MONTHLY (QM)
     Route: 058
     Dates: start: 2022, end: 202405
  2. FERROUS SULFATE [Concomitant]
     Active Substance: FERROUS SULFATE
     Indication: Anaemia
     Dosage: 1 TABLET IN THE MORNING

REACTIONS (5)
  - Syncope [Unknown]
  - Glaucoma [Not Recovered/Not Resolved]
  - Deafness [Not Recovered/Not Resolved]
  - Tinnitus [Recovering/Resolving]
  - Hyperhidrosis [Unknown]

NARRATIVE: CASE EVENT DATE: 20240101
